FAERS Safety Report 5781247-9 (Version None)
Quarter: 2008Q2

REPORT INFORMATION
  Report Type: 
  Country: None (occurrence: None)
  Receive Date: 20080618
  Receipt Date: 20080605
  Transmission Date: 20081010
  Serious: Yes (Hospitalization)
  Sender: FDA-Public Use
  Company Number: 2008AL005565

PATIENT
  Age: 67 Year
  Sex: Female
  Weight: 62.5964 kg

DRUGS (5)
  1. DIGOXIN [Suspect]
     Indication: ATRIAL FIBRILLATION
     Dosage: DAILY PO
     Route: 048
  2. SYNTHROID [Concomitant]
  3. ATENOLOL [Concomitant]
  4. COUMADIN [Concomitant]
  5. VYTORIN [Concomitant]

REACTIONS (4)
  - FATIGUE [None]
  - FEELING ABNORMAL [None]
  - PARAESTHESIA [None]
  - VISION BLURRED [None]
